FAERS Safety Report 9477565 (Version 2)
Quarter: 2013Q3

REPORT INFORMATION
  Report Type: Spontaneous
  Country: US (occurrence: US)
  Receive Date: 20130827
  Receipt Date: 20130910
  Transmission Date: 20140515
  Serious: Yes (Hospitalization, Other)
  Sender: FDA-Public Use
  Company Number: US-ACTELION-A-US2013-87433

PATIENT
  Age: 49 Year
  Sex: Female

DRUGS (2)
  1. TRACLEER [Suspect]
     Indication: PULMONARY ARTERIAL HYPERTENSION
     Dosage: 125 MG, BID
     Route: 048
     Dates: start: 20130312, end: 20130425
  2. TRACLEER [Suspect]
     Dosage: 62.5 MG, BID
     Route: 055
     Dates: start: 20130213, end: 20130311

REACTIONS (2)
  - Acute respiratory distress syndrome [Recovering/Resolving]
  - Pneumonia [Recovered/Resolved]
